FAERS Safety Report 7433258-5 (Version None)
Quarter: 2011Q2

REPORT INFORMATION
  Report Type: 
  Country: None (occurrence: None)
  Receive Date: 20110422
  Receipt Date: 20110412
  Transmission Date: 20111010
  Serious: Yes (Other)
  Sender: FDA-Public Use
  Company Number: JP-PFIZER INC-2011086525

PATIENT
  Age: 85 Year
  Sex: Female

DRUGS (4)
  1. PERSANTIN [Concomitant]
     Dosage: UNK
     Dates: end: 20110401
  2. MUCOSTA [Concomitant]
     Dosage: UNK
     Dates: end: 20110401
  3. OLMETEC [Suspect]
     Indication: HYPERTENSION
     Dosage: UNK
     Route: 048
     Dates: end: 20110401
  4. LIPITOR [Suspect]
     Dosage: UNK
     Route: 048
     Dates: end: 20110401

REACTIONS (1)
  - PLATELET COUNT DECREASED [None]
